FAERS Safety Report 23664287 (Version 2)
Quarter: 2024Q2

REPORT INFORMATION
  Report Type: Spontaneous
  Country: US (occurrence: US)
  Receive Date: 20240322
  Receipt Date: 20240410
  Transmission Date: 20240716
  Serious: No
  Sender: FDA-Public Use
  Company Number: US-Covis Pharma GmbH-2024COV00256

PATIENT
  Sex: Female

DRUGS (3)
  1. ALVESCO [Suspect]
     Active Substance: CICLESONIDE
     Route: 055
     Dates: start: 2023
  2. PREDNISONE [Concomitant]
     Active Substance: PREDNISONE
     Dates: start: 2023
  3. SPIRIVA [Concomitant]
     Active Substance: TIOTROPIUM BROMIDE MONOHYDRATE
     Dates: start: 202311, end: 202403

REACTIONS (7)
  - Cyanosis [Unknown]
  - Product dose omission issue [Unknown]
  - Dyspnoea [Unknown]
  - Insomnia [Unknown]
  - Asthenia [Unknown]
  - Lethargy [Unknown]
  - Impaired work ability [Unknown]
